FAERS Safety Report 24241830 (Version 1)
Quarter: 2024Q3

REPORT INFORMATION
  Report Type: Report from Study
  Country: CN (occurrence: CN)
  Receive Date: 20240823
  Receipt Date: 20240823
  Transmission Date: 20241016
  Serious: Yes (Other)
  Sender: ROCHE
  Company Number: CN-ROCHE-3106235

PATIENT
  Age: 59 Year
  Sex: Male
  Weight: 70.0 kg

DRUGS (2)
  1. AVASTIN [Suspect]
     Active Substance: BEVACIZUMAB
     Indication: Non-small cell lung cancer
     Dosage: FORM OF ADMIN: 100 MG INJECTION
     Route: 041
     Dates: start: 20151225
  2. AVASTIN [Suspect]
     Active Substance: BEVACIZUMAB
     Dosage: FORM OF ADMIN: 100 MG INJECTION
     Route: 041

REACTIONS (2)
  - Metastases to lung [Not Recovered/Not Resolved]
  - SARS-CoV-2 test positive [Recovered/Resolved]

NARRATIVE: CASE EVENT DATE: 20220506
